FAERS Safety Report 9687613 (Version 2)
Quarter: 2013Q4

REPORT INFORMATION
  Report Type: Spontaneous
  Country: US (occurrence: None)
  Receive Date: 20131112
  Receipt Date: 20131213
  Transmission Date: 20140711
  Serious: Yes (Death, Hospitalization, Other)
  Sender: FDA-Public Use
  Company Number: 2013US001956

PATIENT
  Age: 35 Year
  Sex: Male

DRUGS (4)
  1. PONATINIB [Suspect]
     Indication: ACUTE LYMPHOCYTIC LEUKAEMIA
     Route: 048
  2. 6-MP (MERCAPTOPURINE) [Concomitant]
  3. METHOTREXATE (METHOTREXATE SODIUM) [Concomitant]
  4. ENTECAVIR (ENTECAVIR) [Concomitant]

REACTIONS (9)
  - Metastases to central nervous system [None]
  - Disease progression [None]
  - Ataxia [None]
  - Neurological decompensation [None]
  - Somnolence [None]
  - Asthenia [None]
  - Nausea [None]
  - Vomiting [None]
  - Headache [None]
